FAERS Safety Report 11544884 (Version 3)
Quarter: 2015Q4

REPORT INFORMATION
  Report Type: Report from Study
  Country: US (occurrence: US)
  Receive Date: 20150924
  Receipt Date: 20151119
  Transmission Date: 20160304
  Serious: Yes (Other)
  Sender: FDA-Public Use
  Company Number: PHEH2015US018741

PATIENT
  Sex: Female
  Weight: 122.45 kg

DRUGS (1)
  1. GILENYA [Suspect]
     Active Substance: FINGOLIMOD HYDROCHLORIDE
     Indication: MULTIPLE SCLEROSIS
     Dosage: 0.5 MG, QD
     Route: 048
     Dates: start: 20150507

REACTIONS (8)
  - Multiple sclerosis [Unknown]
  - Dyspnoea [Unknown]
  - Chest discomfort [Unknown]
  - Insomnia [Not Recovered/Not Resolved]
  - Central nervous system lesion [Unknown]
  - Brain oedema [Unknown]
  - Migraine [Not Recovered/Not Resolved]
  - Myocardial infarction [Unknown]
